FAERS Safety Report 8502528-1 (Version None)
Quarter: 2012Q3

REPORT INFORMATION
  Report Type: 
  Country: None (occurrence: None)
  Receive Date: 20120711
  Receipt Date: 20120629
  Transmission Date: 20120928
  Serious: Yes (Other)
  Sender: FDA-Public Use
  Company Number: FR-ELI_LILLY_AND_COMPANY-FR201207001255

PATIENT
  Sex: Male

DRUGS (7)
  1. ZOLPIDEM [Concomitant]
  2. PAROXETINE HCL [Concomitant]
  3. PERGOLIDE MESYLATE [Suspect]
     Dosage: 0.5 MG, TID
     Route: 048
     Dates: start: 20040330, end: 20040629
  4. XANAX [Concomitant]
  5. PERGOLIDE MESYLATE [Suspect]
     Dosage: 1 MG, TID
     Route: 048
     Dates: start: 20040630, end: 20110324
  6. PERGOLIDE MESYLATE [Suspect]
     Indication: PARKINSON'S DISEASE
     Dosage: UNK
     Route: 048
     Dates: start: 20040202, end: 20040329
  7. SINEMET [Concomitant]
     Indication: PARKINSON'S DISEASE
     Dosage: UNK, TID
     Dates: start: 20060619

REACTIONS (3)
  - PATHOLOGICAL GAMBLING [None]
  - DYSPNOEA EXERTIONAL [None]
  - CARDIAC DISORDER [None]
